FAERS Safety Report 10673984 (Version 1)
Quarter: 2014Q4

REPORT INFORMATION
  Report Type: Spontaneous
  Country: US (occurrence: None)
  Receive Date: 20141223
  Receipt Date: 20141223
  Transmission Date: 20150529
  Serious: Yes (Life-Threatening)
  Sender: FDA-Public Use
  Company Number: None

PATIENT
  Age: 50 Year
  Sex: Female
  Weight: 54.43 kg

DRUGS (3)
  1. HYDROXYCHLOROQUINE [Suspect]
     Active Substance: HYDROXYCHLOROQUINE
     Indication: UNDIFFERENTIATED CONNECTIVE TISSUE DISEASE
     Dosage: 1/2 PILL, THEN 1 PILL THEN 2 PILLS NEVER MADE IE TO 2 PILLS 1/2 FOR ONE WEEK THEN 1 PILL 6 DAYS
     Route: 048
     Dates: start: 20130720, end: 20130812
  2. MEDROL [Concomitant]
     Active Substance: METHYLPREDNISOLONE
  3. PLAQUENIL [Concomitant]
     Active Substance: HYDROXYCHLOROQUINE SULFATE

REACTIONS (9)
  - Nasal pruritus [None]
  - Blister [None]
  - Skin ulcer [None]
  - Scar [None]
  - Stevens-Johnson syndrome [None]
  - Vulvovaginal pruritus [None]
  - Drug hypersensitivity [None]
  - Therapy cessation [None]
  - Rash [None]

NARRATIVE: CASE EVENT DATE: 20130801
